FAERS Safety Report 12549048 (Version 1)
Quarter: 2016Q3

REPORT INFORMATION
  Report Type: Report from Study
  Country: JP (occurrence: JP)
  Receive Date: 20160712
  Receipt Date: 20160712
  Transmission Date: 20161109
  Serious: Yes (Hospitalization)
  Sender: FDA-Public Use
  Company Number: JP-SA-2016SA124270

PATIENT
  Age: 44 Year
  Sex: Female
  Weight: 61 kg

DRUGS (9)
  1. HUMALOG MIX [Concomitant]
     Active Substance: INSULIN LISPRO
  2. FERROUS SULFATE. [Concomitant]
     Active Substance: FERROUS SULFATE
     Dates: start: 20150323
  3. PLAVIX [Suspect]
     Active Substance: CLOPIDOGREL BISULFATE
     Indication: CEREBROVASCULAR ACCIDENT
     Route: 065
     Dates: start: 20140819, end: 20160104
  4. METGLUCO [Concomitant]
     Active Substance: METFORMIN HYDROCHLORIDE
     Dates: start: 20140901
  5. PLAVIX [Suspect]
     Active Substance: CLOPIDOGREL BISULFATE
     Indication: CEREBROVASCULAR ACCIDENT
     Route: 065
     Dates: start: 20160105
  6. LIPITOR [Concomitant]
     Active Substance: ATORVASTATIN CALCIUM
     Dates: end: 20141207
  7. PLAVIX [Suspect]
     Active Substance: CLOPIDOGREL BISULFATE
     Indication: CEREBROVASCULAR ACCIDENT
     Route: 065
     Dates: end: 20140818
  8. ADONA [Concomitant]
     Active Substance: CARBAZOCHROME SODIUM SULFONATE
     Dates: start: 20150824, end: 20151203
  9. LANSOPRAZOLE OD [Concomitant]
     Active Substance: LANSOPRAZOLE
     Dates: end: 20150202

REACTIONS (3)
  - Vitreous haemorrhage [Recovered/Resolved]
  - Vitreous haemorrhage [Recovered/Resolved]
  - Vitreous haemorrhage [Not Recovered/Not Resolved]

NARRATIVE: CASE EVENT DATE: 20141227
